FAERS Safety Report 25845333 (Version 1)
Quarter: 2025Q3

REPORT INFORMATION
  Report Type: Spontaneous
  Country: BR (occurrence: BR)
  Receive Date: 20250925
  Receipt Date: 20250925
  Transmission Date: 20251020
  Serious: Yes (Other)
  Sender: CHEPLAPHARM
  Company Number: BR-CHEPLA-2025011126

PATIENT
  Sex: Female
  Weight: 54 kg

DRUGS (10)
  1. BROMAZEPAM [Suspect]
     Active Substance: BROMAZEPAM
     Indication: Nervousness
     Dosage: DAILY DOSE: 1.5 MILLIGRAM
     Route: 048
  2. BROMAZEPAM [Suspect]
     Active Substance: BROMAZEPAM
     Indication: Surgery
     Dosage: DAILY DOSE: 1.5 MILLIGRAM
     Route: 048
  3. BROMAZEPAM [Suspect]
     Active Substance: BROMAZEPAM
     Indication: Hypertension
     Dosage: DAILY DOSE: 1.5 MILLIGRAM
     Route: 048
  4. BROMAZEPAM [Suspect]
     Active Substance: BROMAZEPAM
     Indication: Nervousness
     Dosage: DAILY DOSE: 3 MILLIGRAM
  5. BROMAZEPAM [Suspect]
     Active Substance: BROMAZEPAM
     Indication: Surgery
     Dosage: DAILY DOSE: 3 MILLIGRAM
  6. BROMAZEPAM [Suspect]
     Active Substance: BROMAZEPAM
     Indication: Hypertension
     Dosage: DAILY DOSE: 3 MILLIGRAM
  7. CLONAZEPAM [Suspect]
     Active Substance: CLONAZEPAM
     Indication: Labyrinthitis
     Dosage: DAILY DOSE: 6 DROP
     Dates: start: 2017
  8. CLONAZEPAM [Suspect]
     Active Substance: CLONAZEPAM
     Indication: Nervousness
     Dosage: DAILY DOSE: 6 DROP
     Dates: start: 2017
  9. CLONAZEPAM [Suspect]
     Active Substance: CLONAZEPAM
     Indication: Labyrinthitis
     Dosage: DAILY DOSE: 10 DROP
     Dates: end: 202508
  10. CLONAZEPAM [Suspect]
     Active Substance: CLONAZEPAM
     Indication: Nervousness
     Dosage: DAILY DOSE: 10 DROP
     Dates: end: 202508

REACTIONS (17)
  - Breast cancer [Recovered/Resolved]
  - Intentional product use issue [Recovered/Resolved]
  - Diabetes mellitus [Not Recovered/Not Resolved]
  - Blood cholesterol increased [Not Recovered/Not Resolved]
  - Chronic gastritis [Not Recovered/Not Resolved]
  - Headache [Not Recovered/Not Resolved]
  - Flatulence [Not Recovered/Not Resolved]
  - Nausea [Not Recovered/Not Resolved]
  - Dizziness [Not Recovered/Not Resolved]
  - Gastrooesophageal reflux disease [Not Recovered/Not Resolved]
  - Malaise [Unknown]
  - Glucose tolerance impaired [Unknown]
  - Sinusitis [Not Recovered/Not Resolved]
  - Blood glucose increased [Not Recovered/Not Resolved]
  - Glycated albumin increased [Not Recovered/Not Resolved]
  - Off label use [Recovered/Resolved]
  - Product availability issue [Unknown]

NARRATIVE: CASE EVENT DATE: 20220101
